FAERS Safety Report 4894410-6 (Version None)
Quarter: 2006Q1

REPORT INFORMATION
  Report Type: 
  Country: None (occurrence: None)
  Receive Date: 20060127
  Receipt Date: 20060117
  Transmission Date: 20060701
  Serious: Yes (Death, Hospitalization)
  Sender: FDA-Public Use
  Company Number: GB-JNJFOC-20050602261

PATIENT
  Sex: Male
  Weight: 102 kg

DRUGS (3)
  1. IMODIUM [Suspect]
     Route: 048
     Dates: start: 20050503, end: 20050503
  2. IMODIUM [Suspect]
     Route: 048
     Dates: start: 20050503, end: 20050503
  3. PARACETAMOL [Concomitant]
     Route: 048

REACTIONS (18)
  - ANAPHYLACTIC SHOCK [None]
  - ARTERIOSCLEROSIS CORONARY ARTERY [None]
  - CARDIAC ARREST [None]
  - COAGULOPATHY [None]
  - CORONARY ARTERY STENOSIS [None]
  - DRUG HYPERSENSITIVITY [None]
  - ELECTROMECHANICAL DISSOCIATION [None]
  - GASTROENTERITIS [None]
  - GASTROINTESTINAL OEDEMA [None]
  - GENERALISED OEDEMA [None]
  - HEPATIC STEATOSIS [None]
  - HEPATOMEGALY [None]
  - INTESTINAL OBSTRUCTION [None]
  - LUNG CONSOLIDATION [None]
  - MULTI-ORGAN FAILURE [None]
  - RENAL IMPAIRMENT [None]
  - RESPIRATORY DISORDER [None]
  - SEPTIC SHOCK [None]
